FAERS Safety Report 6506913-9 (Version None)
Quarter: 2009Q4

REPORT INFORMATION
  Report Type: 
  Country: None (occurrence: None)
  Receive Date: 20091221
  Receipt Date: 20091218
  Transmission Date: 20100525
  Serious: Yes (Hospitalization, Other)
  Sender: FDA-Public Use
  Company Number: US-TYCO HEALTHCARE/MALLINCKRODT-T200900153

PATIENT
  Sex: Female

DRUGS (17)
  1. OPTIMARK [Suspect]
     Indication: ANGIOGRAM
     Dosage: 25 ML (CC), UNK
     Route: 042
     Dates: start: 20030805, end: 20030805
  2. OMNISCAN [Suspect]
     Indication: NUCLEAR MAGNETIC RESONANCE IMAGING
     Dosage: 20 ML (CC), UNK
     Route: 042
     Dates: start: 20030221, end: 20030221
  3. OMNISCAN [Suspect]
     Indication: NUCLEAR MAGNETIC RESONANCE IMAGING BRAIN
     Dosage: 10 ML (CC), UNK
     Route: 042
     Dates: start: 20040108, end: 20040108
  4. OMNISCAN [Suspect]
     Dosage: 20 ML (CC), UNK
     Route: 042
     Dates: start: 20040121, end: 20040121
  5. MAGNEVIST [Suspect]
     Indication: NUCLEAR MAGNETIC RESONANCE IMAGING
     Dosage: 15 ML (CC), UNK
     Route: 042
     Dates: start: 20051005, end: 20051005
  6. NORVASC [Concomitant]
     Dosage: 5 MG, QD
  7. COZAAR [Concomitant]
     Dosage: 10 MG, QD
  8. ACTOS [Concomitant]
     Dosage: 45 MG, QD
  9. GLUCOTROL [Concomitant]
     Dosage: 5 MG, QD
  10. PROCRIT                            /00909301/ [Concomitant]
     Dosage: 600000 UNK, UNK
  11. PROPRANOLOL [Concomitant]
     Dosage: 10 MG, QD
  12. ACTIQ [Concomitant]
  13. HYDROCODONE [Concomitant]
  14. FERROUS SULFATE TAB [Concomitant]
  15. FLEXERIL [Concomitant]
  16. CELEXA [Concomitant]
  17. TOPROL-XL [Concomitant]

REACTIONS (14)
  - ABNORMAL LOSS OF WEIGHT [None]
  - BACTERAEMIA [None]
  - CELLULITIS [None]
  - CHEST PAIN [None]
  - CHOLELITHIASIS [None]
  - DRUG ABUSE [None]
  - LOWER LIMB FRACTURE [None]
  - MAJOR DEPRESSION [None]
  - NEPHROGENIC SYSTEMIC FIBROSIS [None]
  - OFF LABEL USE [None]
  - PAIN [None]
  - PANIC DISORDER WITHOUT AGORAPHOBIA [None]
  - VASCULAR GRAFT OCCLUSION [None]
  - WITHDRAWAL SYNDROME [None]
